FAERS Safety Report 10332317 (Version 1)
Quarter: 2014Q3

REPORT INFORMATION
  Report Type: Spontaneous
  Country: US (occurrence: US)
  Receive Date: 20140722
  Receipt Date: 20140722
  Transmission Date: 20150326
  Serious: No
  Sender: FDA-Public Use
  Company Number: US-ASTRAZENECA-2014SE29510

PATIENT
  Age: 78 Year
  Sex: Male
  Weight: 78.9 kg

DRUGS (7)
  1. EXELON PATCH [Concomitant]
     Active Substance: RIVASTIGMINE
     Indication: MEMORY IMPAIRMENT
     Dosage: 9.05 DAILY
     Route: 061
     Dates: start: 2005
  2. QUETIAPINE FUMARATE. [Suspect]
     Active Substance: QUETIAPINE FUMARATE
     Indication: ANXIETY
     Route: 048
     Dates: start: 20140223
  3. QUETIAPINE FUMARATE. [Suspect]
     Active Substance: QUETIAPINE FUMARATE
     Indication: HALLUCINATION
     Route: 048
     Dates: start: 20140223
  4. QUETIAPINE FUMARATE. [Suspect]
     Active Substance: QUETIAPINE FUMARATE
     Indication: FRUSTRATION
     Route: 048
     Dates: start: 20140223
  5. ACTOS [Concomitant]
     Active Substance: PIOGLITAZONE HYDROCHLORIDE
     Indication: DIABETES MELLITUS
     Dosage: UNKNOWN Q AM
     Route: 048
     Dates: start: 2000
  6. NAMENDA XR [Concomitant]
     Active Substance: MEMANTINE HYDROCHLORIDE
     Indication: MEMORY IMPAIRMENT
     Dosage: UNKNOWN DAILY
     Route: 048
     Dates: start: 2002
  7. QUETIAPINE FUMARATE. [Suspect]
     Active Substance: QUETIAPINE FUMARATE
     Indication: AGITATION
     Route: 048
     Dates: start: 20140223

REACTIONS (5)
  - Drug effect incomplete [Unknown]
  - Intentional product misuse [Unknown]
  - Agitation [Unknown]
  - Dementia [Unknown]
  - Confusional state [Unknown]

NARRATIVE: CASE EVENT DATE: 20140223
